FAERS Safety Report 25610388 (Version 2)
Quarter: 2025Q3

REPORT INFORMATION
  Report Type: Spontaneous
  Country: US (occurrence: US)
  Receive Date: 20250728
  Receipt Date: 20250821
  Transmission Date: 20251020
  Serious: No
  Sender: JOHNSON AND JOHNSON
  Company Number: US-JNJFOC-20250730115

PATIENT
  Age: 60 Year
  Sex: Male

DRUGS (4)
  1. TREMFYA [Suspect]
     Active Substance: GUSELKUMAB
     Indication: Product used for unknown indication
     Route: 065
     Dates: start: 20250622, end: 20250622
  2. TREMFYA [Suspect]
     Active Substance: GUSELKUMAB
  3. TREMFYA [Suspect]
     Active Substance: GUSELKUMAB
  4. TREMFYA [Suspect]
     Active Substance: GUSELKUMAB

REACTIONS (12)
  - Adverse drug reaction [Unknown]
  - Dizziness [Unknown]
  - Fatigue [Unknown]
  - Pyrexia [Unknown]
  - Myalgia [Unknown]
  - Nausea [Unknown]
  - Abnormal behaviour [Unknown]
  - Arthralgia [Not Recovered/Not Resolved]
  - Cough [Unknown]
  - Headache [Unknown]
  - Arthralgia [Unknown]
  - Musculoskeletal stiffness [Unknown]
